FAERS Safety Report 7909768-0 (Version None)
Quarter: 2011Q4

REPORT INFORMATION
  Report Type: 
  Country: None (occurrence: None)
  Receive Date: 20111111
  Receipt Date: 20111108
  Transmission Date: 20120403
  Serious: Yes (Hospitalization, Other)
  Sender: FDA-Public Use
  Company Number: US-PFIZER INC-001-0719-M0000064

PATIENT
  Age: 74 Year
  Sex: Female

DRUGS (4)
  1. ZITHROMAX [Suspect]
     Dosage: 250 MG, DAILY
     Route: 065
  2. LOPID [Suspect]
     Dosage: 600 MG, 2X/DAY
     Route: 065
  3. ZITHROMAX [Suspect]
     Indication: RESPIRATORY TRACT INFECTION
     Dosage: 500 MG, DAILY
     Route: 065
  4. BAYCOL [Suspect]
     Indication: HYPERCHOLESTEROLAEMIA
     Dosage: 0.3 MG, 1X/DAY
     Route: 048

REACTIONS (4)
  - BLOOD CREATININE INCREASED [None]
  - RESPIRATORY TRACT INFECTION [None]
  - BLOOD UREA INCREASED [None]
  - RHABDOMYOLYSIS [None]
